FAERS Safety Report 5031671-7 (Version None)
Quarter: 2006Q2

REPORT INFORMATION
  Report Type: 
  Country: None (occurrence: None)
  Receive Date: 20060616
  Receipt Date: 20060606
  Transmission Date: 20061013
  Serious: Yes (Hospitalization)
  Sender: FDA-Public Use
  Company Number: 2006-BP-06507RO

PATIENT
  Age: 46 Year
  Sex: Female

DRUGS (4)
  1. TAMOXIFEN CITRATE [Suspect]
     Indication: BREAST CANCER
     Dosage: 10 MG BID (10 MG), PO
     Route: 048
  2. GEMFIBROZIL [Concomitant]
  3. ACARBOSE (ACARBOSE) [Concomitant]
  4. GLICLAZIDE (GLICLAZIDE) [Concomitant]

REACTIONS (29)
  - ABDOMINAL PAIN UPPER [None]
  - ANION GAP INCREASED [None]
  - ANOREXIA [None]
  - BLOOD BICARBONATE DECREASED [None]
  - BLOOD CHLORIDE DECREASED [None]
  - BLOOD CHOLESTEROL INCREASED [None]
  - BLOOD GLUCOSE INCREASED [None]
  - BLOOD POTASSIUM DECREASED [None]
  - BLOOD SODIUM DECREASED [None]
  - BLOOD TRIGLYCERIDES INCREASED [None]
  - BOWEL SOUNDS ABNORMAL [None]
  - C-REACTIVE PROTEIN INCREASED [None]
  - GLYCOSURIA [None]
  - HAEMATOCRIT DECREASED [None]
  - HAEMOGLOBIN DECREASED [None]
  - HEPATIC STEATOSIS [None]
  - HEPATOMEGALY [None]
  - HYPERTRIGLYCERIDAEMIA [None]
  - HYPOKALAEMIA [None]
  - KETONURIA [None]
  - OEDEMA [None]
  - PAIN [None]
  - PANCREATIC DISORDER [None]
  - PANCREATITIS ACUTE [None]
  - PCO2 DECREASED [None]
  - PLATELET COUNT DECREASED [None]
  - PO2 DECREASED [None]
  - RESPIRATORY RATE INCREASED [None]
  - VOMITING [None]
